FAERS Safety Report 23341412 (Version 1)
Quarter: 2023Q4

REPORT INFORMATION
  Report Type: Spontaneous
  Country: DE (occurrence: None)
  Receive Date: 20231227
  Receipt Date: 20231227
  Transmission Date: 20240110
  Serious: Yes (Other)
  Sender: FDA-Public Use
  Company Number: DE-ROCHE-3445565

PATIENT
  Age: 80 Year
  Sex: Male

DRUGS (4)
  1. VABYSMO [Suspect]
     Active Substance: FARICIMAB\FARICIMAB-SVOA
     Indication: Neovascular age-related macular degeneration
     Dosage: DOSE: 120 MG/ML?ON 24/JUL/2023, HE RECEIVED LAST DOSE OF FARICIMAB.
     Route: 050
     Dates: start: 20230525
  2. ASPIRIN [Concomitant]
     Active Substance: ASPIRIN
     Dosage: INDICATION: BLOOD THINNING
  3. ENALAPRIL [Concomitant]
     Active Substance: ENALAPRIL
     Dosage: INDICATION: BLOOD PRESSURE-LOWERING
  4. ATORVASTATIN [Concomitant]
     Active Substance: ATORVASTATIN
     Dosage: INDICATION: CHOLESTEROL SUPPRESSANT

REACTIONS (2)
  - Cerebrovascular accident [Unknown]
  - Hemiplegia [Recovering/Resolving]

NARRATIVE: CASE EVENT DATE: 20230801
